FAERS Safety Report 12442012 (Version 1)
Quarter: 2016Q2

REPORT INFORMATION
  Report Type: Report from Study
  Country: US (occurrence: US)
  Receive Date: 20160607
  Receipt Date: 20160607
  Transmission Date: 20160815
  Serious: Yes (Other)
  Sender: FDA-Public Use
  Company Number: US-MUNDIPHARMA DS AND PHARMACOVIGILANCE-USA-2016-0129834

PATIENT
  Age: 59 Year
  Sex: Male

DRUGS (1)
  1. OXYCONTIN [Suspect]
     Active Substance: OXYCODONE HYDROCHLORIDE
     Indication: ARTHRITIS
     Dosage: 80 MG, TID
     Route: 048
     Dates: start: 20140707

REACTIONS (8)
  - Bedridden [Unknown]
  - Breath sounds abnormal [Recovering/Resolving]
  - Feeling abnormal [Unknown]
  - Weight decreased [Recovering/Resolving]
  - Drug withdrawal syndrome [Unknown]
  - Influenza [Recovering/Resolving]
  - Bronchitis [Recovering/Resolving]
  - Decreased appetite [Recovering/Resolving]

NARRATIVE: CASE EVENT DATE: 201603
